FAERS Safety Report 22531449 (Version 1)
Quarter: 2023Q2

REPORT INFORMATION
  Report Type: Spontaneous
  Country: GB (occurrence: GB)
  Receive Date: 20230607
  Receipt Date: 20230607
  Transmission Date: 20230722
  Serious: Yes (Disabling, Other)
  Sender: FDA-Public Use
  Company Number: GB-MHRA-MED-202305311550054070-VRBWT

PATIENT
  Age: 72 Year
  Sex: Male

DRUGS (1)
  1. OXYCODONE HYDROCHLORIDE [Suspect]
     Active Substance: OXYCODONE HYDROCHLORIDE
     Indication: Spinal pain
     Dosage: 2ML ONCE. STOPPED DUE TO SUBSTANTIAL ADVERSE REACTION; ;
     Route: 065
     Dates: start: 20230425

REACTIONS (3)
  - Vertigo labyrinthine [Recovered/Resolved]
  - Medication error [Unknown]
  - Nausea [Recovered/Resolved with Sequelae]

NARRATIVE: CASE EVENT DATE: 20230425
